FAERS Safety Report 7761674-0 (Version None)
Quarter: 2011Q3

REPORT INFORMATION
  Report Type: 
  Country: None (occurrence: None)
  Receive Date: 20110920
  Receipt Date: 20110909
  Transmission Date: 20111222
  Serious: Yes (Hospitalization)
  Sender: FDA-Public Use
  Company Number: PHFR2011GB03616

PATIENT
  Sex: Female

DRUGS (8)
  1. ACETAMINOPHEN [Suspect]
     Route: 048
     Dates: start: 20110608, end: 20110608
  2. CLOZAPINE [Suspect]
     Dosage: 150 MG/ DAY
     Route: 048
  3. CLOZAPINE [Suspect]
     Route: 048
     Dates: start: 20110608, end: 20110608
  4. CITALOPRAM HYDROBROMIDE [Suspect]
     Route: 048
  5. ACETAMINOPHEN [Suspect]
     Route: 048
  6. CLOZAPINE [Suspect]
     Indication: SCHIZOPHRENIA
     Route: 048
     Dates: start: 20000419
  7. CITALOPRAM HYDROBROMIDE [Suspect]
     Route: 048
     Dates: start: 20110608, end: 20110608
  8. CITALOPRAM HYDROBROMIDE [Suspect]
     Dosage: 40 MG/ DAY
     Route: 048

REACTIONS (1)
  - OVERDOSE [None]
